FAERS Safety Report 19069527 (Version 1)
Quarter: 2021Q1

REPORT INFORMATION
  Report Type: Spontaneous
  Country: CL (occurrence: CL)
  Receive Date: 20210329
  Receipt Date: 20210329
  Transmission Date: 20210420
  Serious: Yes (Other)
  Sender: FDA-Public Use
  Company Number: CL-ORGANON-O2103CHL002818

PATIENT
  Age: 73 Year
  Sex: Female
  Weight: 70 kg

DRUGS (4)
  1. PREDNISONE. [Concomitant]
     Active Substance: PREDNISONE
  2. FEMODENE [Concomitant]
     Active Substance: ETHINYL ESTRADIOL\GESTODENE
  3. FLUIDASA [ACETYLCYSTEINE] [Concomitant]
  4. SINGULAIR [Suspect]
     Active Substance: MONTELUKAST SODIUM
     Indication: ASTHMA
     Dosage: 10 MILLIGRAM, QD
     Route: 048
     Dates: start: 2018

REACTIONS (2)
  - Product dose omission issue [Unknown]
  - Asthmatic crisis [Unknown]
